FAERS Safety Report 9720872 (Version 1)
Quarter: 2013Q4

REPORT INFORMATION
  Report Type: Spontaneous
  Country: GB (occurrence: GB)
  Receive Date: 20131129
  Receipt Date: 20131129
  Transmission Date: 20140711
  Serious: Yes (Other)
  Sender: FDA-Public Use
  Company Number: PHHY2013GB135429

PATIENT
  Age: 15 Year
  Sex: Female

DRUGS (12)
  1. SULFADIAZINE [Suspect]
     Indication: CHOROIDITIS
     Dosage: 1 G, QID
     Route: 048
  2. SULFADIAZINE [Suspect]
     Indication: TOXOPLASMOSIS
  3. FOLINIC ACID [Suspect]
     Indication: CHOROIDITIS
     Dosage: 15 MG, BIW
  4. FOLINIC ACID [Suspect]
     Indication: TOXOPLASMOSIS
  5. PREDNISONE [Suspect]
     Indication: CHOROIDITIS
     Dosage: 40 MG, QD
  6. PREDNISONE [Suspect]
     Indication: TOXOPLASMOSIS
  7. PYRIMETHAMINE [Suspect]
     Indication: CHOROIDITIS
     Dosage: 50 MG DAILY
  8. PYRIMETHAMINE [Suspect]
     Indication: TOXOPLASMOSIS
  9. DEXAMETHASONE [Concomitant]
     Indication: CHOROIDITIS
     Route: 061
  10. DEXAMETHASONE [Concomitant]
     Indication: TOXOPLASMOSIS
  11. KETOROLAC [Concomitant]
     Indication: CHOROIDITIS
  12. KETOROLAC [Concomitant]
     Indication: TOXOPLASMOSIS

REACTIONS (13)
  - Drug reaction with eosinophilia and systemic symptoms [Recovered/Resolved]
  - Petechiae [Recovered/Resolved]
  - Body temperature increased [Recovered/Resolved]
  - Rash pruritic [Recovered/Resolved]
  - Rash papular [Recovered/Resolved]
  - Face oedema [Recovered/Resolved]
  - Oedema peripheral [Recovered/Resolved]
  - Hepatomegaly [Recovered/Resolved]
  - Hepatic necrosis [Recovered/Resolved]
  - Eosinophilia [Recovered/Resolved]
  - Monocytosis [Recovered/Resolved]
  - Abdominal tenderness [Recovered/Resolved]
  - Leukocytosis [Recovered/Resolved]
